FAERS Safety Report 8841437 (Version 1)
Quarter: 2012Q4

REPORT INFORMATION
  Report Type: 
  Country: US (occurrence: US)
  Receive Date: 20121016
  Receipt Date: 20121016
  Transmission Date: 20130627
  Serious: No
  Sender: FDA-Public Use
  Company Number: US-009507513-1208USA007194

PATIENT
  Sex: Female

DRUGS (3)
  1. PEG-INTRON [Suspect]
     Indication: HEPATITIS C
     Dosage: UNK
     Dates: start: 20120625
  2. REBETOL [Suspect]
     Indication: HEPATITIS C
     Dosage: UNK
     Dates: start: 20120625
  3. VICTRELIS [Suspect]
     Indication: HEPATITIS C
     Dosage: UNK
     Dates: start: 20120721

REACTIONS (13)
  - Dysphagia [Unknown]
  - Eating disorder [Unknown]
  - Epistaxis [Unknown]
  - Tremor [Unknown]
  - Weight decreased [Unknown]
  - Vomiting [Unknown]
  - Malaise [Unknown]
  - Nausea [Unknown]
  - Depression [Unknown]
  - Malaise [Unknown]
  - Nausea [Unknown]
  - Vomiting [Unknown]
  - Anaemia [Unknown]
